FAERS Safety Report 8989802 (Version 2)
Quarter: 2013Q1

REPORT INFORMATION
  Report Type: Spontaneous
  Country: JP (occurrence: JP)
  Receive Date: 20121228
  Receipt Date: 20130102
  Transmission Date: 20140127
  Serious: Yes (Death, Other)
  Sender: FDA-Public Use
  Company Number: JP-JNJFOC-20121210291

PATIENT
  Age: 65 Year
  Sex: Male

DRUGS (18)
  1. DOXORUBICIN HYDROCHLORIDE [Suspect]
     Indication: EWING^S SARCOMA
     Route: 042
  2. DOXORUBICIN HYDROCHLORIDE [Suspect]
     Indication: PRIMITIVE NEUROECTODERMAL TUMOUR
     Route: 042
  3. DOXORUBICIN [Suspect]
     Indication: EWING^S SARCOMA
     Route: 065
  4. DOXORUBICIN [Suspect]
     Indication: PRIMITIVE NEUROECTODERMAL TUMOUR
     Route: 065
  5. VINCRISTINE [Suspect]
     Indication: EWING^S SARCOMA
     Route: 065
  6. VINCRISTINE [Suspect]
     Indication: PRIMITIVE NEUROECTODERMAL TUMOUR
     Route: 065
  7. IFOSFAMIDE [Suspect]
     Indication: EWING^S SARCOMA
     Route: 065
  8. IFOSFAMIDE [Suspect]
     Indication: PRIMITIVE NEUROECTODERMAL TUMOUR
     Route: 065
  9. ETOPOSIDE [Suspect]
     Indication: EWING^S SARCOMA
     Route: 065
  10. ETOPOSIDE [Suspect]
     Indication: PRIMITIVE NEUROECTODERMAL TUMOUR
     Route: 065
  11. CISPLATIN [Suspect]
     Indication: EWING^S SARCOMA
     Route: 065
  12. CISPLATIN [Suspect]
     Indication: PRIMITIVE NEUROECTODERMAL TUMOUR
     Route: 065
  13. DOCETAXEL [Suspect]
     Indication: EWING^S SARCOMA
     Route: 065
  14. DOCETAXEL [Suspect]
     Indication: PRIMITIVE NEUROECTODERMAL TUMOUR
     Route: 065
  15. DEXAMETHASONE [Suspect]
     Indication: EWING^S SARCOMA
     Route: 065
  16. DEXAMETHASONE [Suspect]
     Indication: PRIMITIVE NEUROECTODERMAL TUMOUR
     Route: 065
  17. RADIOTHERAPY [Suspect]
     Indication: EWING^S SARCOMA
     Route: 065
  18. RADIOTHERAPY [Suspect]
     Indication: PRIMITIVE NEUROECTODERMAL TUMOUR
     Route: 065

REACTIONS (3)
  - Mesenteric artery thrombosis [Fatal]
  - Metastases to lung [Unknown]
  - Off label use [Unknown]
